FAERS Safety Report 6125079-0 (Version None)
Quarter: 2009Q1

REPORT INFORMATION
  Report Type: 
  Country: None (occurrence: None)
  Receive Date: 20090318
  Receipt Date: 20090306
  Transmission Date: 20090719
  Serious: Yes (Death, Life-Threatening, Hospitalization, Other)
  Sender: FDA-Public Use
  Company Number: 2009-00556

PATIENT
  Age: 88 Year
  Sex: Male
  Weight: 82.3 kg

DRUGS (28)
  1. VELCADE [Suspect]
     Indication: MULTIPLE MYELOMA
     Dosage: 1.6 MG/M2, UNK, IV BOLUS
     Route: 040
     Dates: start: 20090129, end: 20090205
  2. DEXAMETHASONE TAB [Suspect]
     Indication: MULTIPLE MYELOMA
     Dosage: 40 MG, ORAL
     Route: 048
     Dates: start: 20090129, end: 20090206
  3. ACYCLOVIR [Concomitant]
  4. ALLOPURINOL [Concomitant]
  5. BISACODYL (BISACODYL) [Concomitant]
  6. CASTOR OIL (CASTOR OIL) [Concomitant]
  7. CITALOPRAM HYDROBROMIDE [Concomitant]
  8. DILTIAZEM [Concomitant]
  9. DOCUSATE SODIUM (DOCUSATE SODIUM) [Concomitant]
  10. SENNOSIDE (SENNOSIDE A) [Concomitant]
  11. EPOETIN ALFA (EPOETIN ALFA) [Concomitant]
  12. FLUCONAZOLE [Concomitant]
  13. LIDOCAINE [Concomitant]
  14. NITROGLYCERIN [Concomitant]
  15. OMEPRAZOLE [Concomitant]
  16. ACETAMINOPHEN W/OXYDOEON (PARACETAMOL, OXYCODONE HYDROCHLORIDE) [Concomitant]
  17. SIMVASTATIN [Concomitant]
  18. TEMAZEPAM [Concomitant]
  19. COUMADIN [Concomitant]
  20. PLASMA [Concomitant]
  21. VANCOMYCIN [Concomitant]
  22. LEVAQUIN [Concomitant]
  23. ZOSYN [Concomitant]
  24. LASIX [Concomitant]
  25. PHYTONADIONE [Concomitant]
  26. MULTIVITAMINS (ERGOCALCIFEROL, PANTHENOL, NICOTINAMIDE, RIBOFLAVIN, TH [Concomitant]
  27. ASCORBIC ACID [Concomitant]
  28. ASPIRIN [Concomitant]

REACTIONS (7)
  - BLOOD PRESSURE INCREASED [None]
  - CEREBELLAR HAEMORRHAGE [None]
  - CEREBRAL HAEMORRHAGE [None]
  - CYSTITIS HAEMORRHAGIC [None]
  - HYDROCEPHALUS [None]
  - TUMOUR LYSIS SYNDROME [None]
  - UNRESPONSIVE TO STIMULI [None]
